FAERS Safety Report 5458655-9 (Version None)
Quarter: 2007Q3

REPORT INFORMATION
  Report Type: 
  Country: None (occurrence: None)
  Receive Date: 20070919
  Receipt Date: 20070419
  Transmission Date: 20080115
  Serious: Yes (Hospitalization)
  Sender: FDA-Public Use
  Company Number: US-ASTRAZENECA-2007UW07762

PATIENT
  Age: 35 Year
  Sex: Female
  Weight: 98.6 kg

DRUGS (5)
  1. SEROQUEL [Suspect]
     Indication: SLEEP DISORDER THERAPY
     Route: 048
     Dates: start: 19990101, end: 20050101
  2. SEROQUEL [Suspect]
     Indication: BIPOLAR DISORDER
     Route: 048
     Dates: start: 19990101, end: 20050101
  3. GEODON [Suspect]
     Dates: start: 20040101, end: 20060101
  4. AMBIEN [Concomitant]
     Dates: start: 20060101
  5. XANAX [Concomitant]
     Dates: start: 20060101

REACTIONS (7)
  - BLOOD CHOLESTEROL INCREASED [None]
  - DEPRESSION [None]
  - DIABETES MELLITUS [None]
  - HYPERLIPIDAEMIA [None]
  - OBESITY [None]
  - SUICIDAL IDEATION [None]
  - WEIGHT INCREASED [None]
